FAERS Safety Report 15404220 (Version 3)
Quarter: 2018Q4

REPORT INFORMATION
  Report Type: Report from Study
  Country: JP (occurrence: JP)
  Receive Date: 20180919
  Receipt Date: 20181022
  Transmission Date: 20190204
  Serious: Yes (Other)
  Sender: FDA-Public Use
  Company Number: JP-SA-2018SA253822

PATIENT
  Age: 75 Year
  Sex: Female
  Weight: 45 kg

DRUGS (6)
  1. HANGESHASHINTO [COPTIS SPP. RHIZOME;GLYCYRRHIZA SPP. ROOT;PANAX GINSEN [Suspect]
     Active Substance: HERBALS
     Indication: PRODUCT USED FOR UNKNOWN INDICATION
     Route: 065
  2. CALCIUM LEVOFOLINATE [Concomitant]
     Active Substance: LEVOLEUCOVORIN CALCIUM
     Indication: RECTAL CANCER
     Dosage: 200 MG/M2
     Route: 041
     Dates: start: 20180731
  3. FLUOROURACIL. [Concomitant]
     Active Substance: FLUOROURACIL
     Dosage: 1920 MG/M2
     Route: 041
     Dates: start: 20180731
  4. FLUOROURACIL. [Concomitant]
     Active Substance: FLUOROURACIL
     Indication: RECTAL CANCER
     Dosage: 320 MG/M2
     Route: 040
     Dates: start: 20180731
  5. AFLIBERCEPT [Suspect]
     Active Substance: AFLIBERCEPT
     Indication: RECTAL CANCER
     Dosage: 4 MG/KG
     Route: 041
     Dates: start: 20180731
  6. IRINOTECAN [Suspect]
     Active Substance: IRINOTECAN
     Indication: RECTAL CANCER
     Dosage: 87.5 MG/M2
     Route: 041
     Dates: start: 20180731

REACTIONS (4)
  - Interstitial lung disease [Recovering/Resolving]
  - Epistaxis [Recovered/Resolved]
  - Pyrexia [Recovering/Resolving]
  - Diarrhoea [Recovered/Resolved]

NARRATIVE: CASE EVENT DATE: 20180807
